FAERS Safety Report 5815458-0 (Version None)
Quarter: 2008Q3

REPORT INFORMATION
  Report Type: 
  Country: None (occurrence: None)
  Receive Date: 20080715
  Receipt Date: 20080630
  Transmission Date: 20090109
  Serious: Yes (Life-Threatening, Hospitalization, Other)
  Sender: FDA-Public Use
  Company Number: MEDI-0006543

PATIENT
  Age: 14 Month
  Sex: Female
  Weight: 10.2 kg

DRUGS (7)
  1. SYNAGIS [Suspect]
     Dosage: SEE IMAGE
     Route: 030
     Dates: start: 20071023, end: 20071218
  2. SYNAGIS [Suspect]
     Dosage: SEE IMAGE
     Route: 030
     Dates: start: 20071023
  3. SYNAGIS [Suspect]
     Dosage: SEE IMAGE
     Route: 030
     Dates: start: 20071120
  4. SYNAGIS [Suspect]
     Dosage: SEE IMAGE
     Route: 030
     Dates: start: 20080129
  5. SYNAGIS [Suspect]
     Dosage: SEE IMAGE
     Route: 030
     Dates: start: 20080226
  6. SYNAGIS [Suspect]
     Dosage: SEE IMAGE
     Route: 030
     Dates: start: 20080325
  7. ENZYME INFUSION [Concomitant]

REACTIONS (2)
  - BRONCHITIS [None]
  - PNEUMONIA RESPIRATORY SYNCYTIAL VIRAL [None]
